FAERS Safety Report 7307590-X (Version None)
Quarter: 2011Q1

REPORT INFORMATION
  Report Type: 
  Country: None (occurrence: None)
  Receive Date: 20110218
  Receipt Date: 20110218
  Transmission Date: 20110831
  Serious: No
  Sender: FDA-Public Use
  Company Number: None

PATIENT
  Age: 53 Year
  Sex: Male
  Weight: 117.9352 kg

DRUGS (1)
  1. ALCOHOL SWAB N/A TRIAD GROUP [Suspect]

REACTIONS (6)
  - COUGH [None]
  - PRODUCT QUALITY ISSUE [None]
  - DYSPNOEA [None]
  - THROAT IRRITATION [None]
  - BACK PAIN [None]
  - DYSURIA [None]
